FAERS Safety Report 9672266 (Version 1)
Quarter: 2013Q4

REPORT INFORMATION
  Report Type: Spontaneous
  Country: BR (occurrence: BR)
  Receive Date: 20131106
  Receipt Date: 20131106
  Transmission Date: 20140711
  Serious: Yes (Hospitalization)
  Sender: FDA-Public Use
  Company Number: BR-ASTRAZENECA-2013SE79499

PATIENT
  Age: 66 Year
  Sex: Male
  Weight: 82 kg

DRUGS (5)
  1. ZESTRIL [Suspect]
     Indication: HYPERTENSION
     Dosage: DAILY
     Route: 048
  2. CRESTOR [Suspect]
     Indication: BLOOD CHOLESTEROL INCREASED
     Dosage: DAILY
     Route: 048
  3. ASPIRINA [Suspect]
     Dates: start: 2003, end: 201310
  4. ASPIRINA [Suspect]
     Dates: start: 2013
  5. EFFIENT [Suspect]
     Indication: VENOUS OCCLUSION
     Dates: start: 201304, end: 201310

REACTIONS (3)
  - Venous occlusion [Recovered/Resolved]
  - Blood cholesterol increased [Unknown]
  - Skin discolouration [Recovered/Resolved]
